FAERS Safety Report 10717755 (Version 4)
Quarter: 2015Q2

REPORT INFORMATION
  Report Type: Spontaneous
  Country: US (occurrence: US)
  Receive Date: 20150116
  Receipt Date: 20150429
  Transmission Date: 20150821
  Serious: Yes (Other)
  Sender: FDA-Public Use
  Company Number: US-PFIZER INC-2015017644

PATIENT
  Age: 63 Year
  Sex: Female
  Weight: 81 kg

DRUGS (13)
  1. LOSARTAN [Concomitant]
     Active Substance: LOSARTAN
     Dosage: 100 MG, DAILY
     Route: 048
     Dates: start: 201410
  2. POTASSIUM GLUCONATE [Concomitant]
     Active Substance: POTASSIUM GLUCONATE
     Dosage: 550 MG, 2X/DAY
  3. TRIAMTERENE AND HYDROCHLOROTHIZIDE [Concomitant]
     Active Substance: HYDROCHLOROTHIAZIDE\TRIAMTERENE
     Indication: HYPERTENSION
     Dosage: UNK, 1X/DAY (37.5 MG/25 MG)
     Route: 048
  4. MINOXIDIL. [Concomitant]
     Active Substance: MINOXIDIL
     Indication: HYPERTENSION
     Dosage: 10 MG, UNK
     Dates: start: 2013
  5. CLONIDINE. [Concomitant]
     Active Substance: CLONIDINE
     Indication: BLOOD PRESSURE INCREASED
     Dosage: 0.2 MG, 2X/DAY
     Dates: start: 1991
  6. PREMARIN [Suspect]
     Active Substance: ESTROGENS, CONJUGATED
     Indication: OESTROGEN REPLACEMENT THERAPY
     Dosage: 1.25 MG, 1X/DAY
     Dates: start: 197911
  7. ALPRAZOLAM. [Concomitant]
     Active Substance: ALPRAZOLAM
     Dosage: 0.5 MG, AT BED TIME
     Route: 048
  8. DOC QLACE [Concomitant]
     Dosage: 100 MG, AT BED TIME
     Route: 048
  9. OXYBUTYNIN HYDROCHLORIDE [Concomitant]
     Active Substance: OXYBUTYNIN CHLORIDE
     Indication: BLADDER DISORDER
     Dosage: 10 MG, AT BED TIME
     Route: 048
  10. FLUOXETINE HCL [Concomitant]
     Active Substance: FLUOXETINE HYDROCHLORIDE
     Indication: ANXIETY
     Dosage: 40 MG, UNK
     Dates: start: 199101
  11. FLUOXETINE HCL [Concomitant]
     Active Substance: FLUOXETINE HYDROCHLORIDE
     Indication: DEPRESSION
  12. METHADONE [Concomitant]
     Active Substance: METHADONE HYDROCHLORIDE
     Indication: ARTHRALGIA
     Dosage: 2.5 MG, 2X/DAY
     Dates: start: 2004
  13. CEPHALEXIN. [Concomitant]
     Active Substance: CEPHALEXIN
     Indication: BLADDER DISORDER
     Dosage: 250 MG, AT BED TIME
     Route: 048
     Dates: start: 2011

REACTIONS (1)
  - Cataract [Recovered/Resolved]
